FAERS Safety Report 19678450 (Version 1)
Quarter: 2021Q3

REPORT INFORMATION
  Report Type: Spontaneous
  Country: US (occurrence: US)
  Receive Date: 20210810
  Receipt Date: 20210810
  Transmission Date: 20211014
  Serious: Yes (Hospitalization, Other)
  Sender: FDA-Public Use
  Company Number: US-TEVA-2021-US-1940530

PATIENT
  Age: 52 Year
  Sex: Female
  Weight: 57.6 kg

DRUGS (21)
  1. FUROSEMIDE. [Suspect]
     Active Substance: FUROSEMIDE
     Indication: PRODUCT USED FOR UNKNOWN INDICATION
     Route: 042
  2. NORCO [Concomitant]
     Active Substance: ACETAMINOPHEN\HYDROCODONE BITARTRATE
     Dosage: 10/325MG
  3. TORASEMIDE [Suspect]
     Active Substance: TORSEMIDE
     Indication: PRODUCT USED FOR UNKNOWN INDICATION
     Dosage: 200 MILLIGRAM DAILY; BID (WITH MEAL),
     Route: 048
  4. SPIRONOLACTONE. [Suspect]
     Active Substance: SPIRONOLACTONE
     Indication: PRODUCT USED FOR UNKNOWN INDICATION
     Dosage: 100 MILLIGRAM DAILY;
     Route: 048
  5. DEXTROSE. [Concomitant]
     Active Substance: DEXTROSE
     Dosage: SOLUTION
  6. FERROUS SULFATE. [Concomitant]
     Active Substance: FERROUS SULFATE
  7. GLUCOSE [Concomitant]
     Active Substance: DEXTROSE
     Route: 048
  8. SYNTHROID [Concomitant]
     Active Substance: LEVOTHYROXINE SODIUM
  9. OPSUMIT [Concomitant]
     Active Substance: MACITENTAN
  10. OXYCODONE HYDROCHLORIDE. [Concomitant]
     Active Substance: OXYCODONE HYDROCHLORIDE
  11. ESTRACE [Concomitant]
     Active Substance: ESTRADIOL
  12. KLONOPIN [Concomitant]
     Active Substance: CLONAZEPAM
  13. REMODULIN [Suspect]
     Active Substance: TREPROSTINIL
     Indication: PULMONARY ARTERIAL HYPERTENSION
     Dosage: 0.035 G/KG
     Route: 041
     Dates: start: 20200819
  14. IMODIUM A?D [Concomitant]
     Active Substance: LOPERAMIDE HYDROCHLORIDE
  15. ALBUMIN HUMAN [Concomitant]
     Active Substance: ALBUMIN HUMAN
  16. REMODULIN [Suspect]
     Active Substance: TREPROSTINIL
     Dosage: 0.035 G/KG,AT RATE OF 1.92 ML/HR, CONTINUOUS
     Route: 041
  17. HEPARIN FLUSH [Concomitant]
     Active Substance: HEPARIN SODIUM
  18. SEVELAMER [Concomitant]
     Active Substance: SEVELAMER
  19. DIGOXIN. [Concomitant]
     Active Substance: DIGOXIN
  20. TADALAFIL. [Concomitant]
     Active Substance: TADALAFIL
  21. SODIUM CHLORIDE. [Concomitant]
     Active Substance: SODIUM CHLORIDE

REACTIONS (3)
  - Weight decreased [Unknown]
  - Acute kidney injury [Unknown]
  - Hyponatraemia [Unknown]

NARRATIVE: CASE EVENT DATE: 20210719
